FAERS Safety Report 16058998 (Version 1)
Quarter: 2019Q1

REPORT INFORMATION
  Report Type: Report from Study
  Country: IT (occurrence: IT)
  Receive Date: 20190311
  Receipt Date: 20190311
  Transmission Date: 20190418
  Serious: Yes (Life-Threatening)
  Sender: FDA-Public Use
  Company Number: IT-PFIZER INC-2019102204

PATIENT
  Age: 49 Year
  Sex: Female

DRUGS (2)
  1. EXEMESTANE. [Suspect]
     Active Substance: EXEMESTANE
     Dosage: 25 MG, 1X/DAY
     Route: 048
  2. TAXOL [Interacting]
     Active Substance: PACLITAXEL
     Indication: BREAST CANCER
     Dosage: 1 DF, SINGLE
     Route: 041
     Dates: start: 20180814, end: 20180814

REACTIONS (4)
  - Neutropenia [Recovered/Resolved]
  - Drug interaction [Recovered/Resolved]
  - Pyrexia [Recovered/Resolved]
  - Leukopenia [Recovered/Resolved]

NARRATIVE: CASE EVENT DATE: 20180826
